FAERS Safety Report 23782991 (Version 1)
Quarter: 2024Q2

REPORT INFORMATION
  Report Type: Spontaneous
  Country: US (occurrence: None)
  Receive Date: 20240424
  Receipt Date: 20240424
  Transmission Date: 20240716
  Serious: Yes (Death)
  Sender: FDA-Public Use
  Company Number: None

PATIENT
  Age: 71 Year
  Sex: Female

DRUGS (9)
  1. OXYCODONE [Suspect]
     Active Substance: OXYCODONE\OXYCODONE HYDROCHLORIDE
  2. BIKTARVY [Concomitant]
     Active Substance: BICTEGRAVIR SODIUM\EMTRICITABINE\TENOFOVIR ALAFENAMIDE FUMARATE
  3. CARVEDILOL [Concomitant]
     Active Substance: CARVEDILOL
  4. Desvenlafaxine ER 25 mg [Concomitant]
  5. AMLODIPINE BESYLATE [Concomitant]
     Active Substance: AMLODIPINE BESYLATE
  6. ATORVASTATIN [Concomitant]
     Active Substance: ATORVASTATIN
  7. FAMOTIDINE [Concomitant]
     Active Substance: FAMOTIDINE
  8. GABAPENTIN [Concomitant]
     Active Substance: GABAPENTIN
  9. Megestrol 625mg/5 ml [Concomitant]

REACTIONS (4)
  - Dyspnoea [None]
  - Unresponsive to stimuli [None]
  - Pulse absent [None]
  - Feeling cold [None]

NARRATIVE: CASE EVENT DATE: 20240422
